FAERS Safety Report 7907078-9 (Version None)
Quarter: 2011Q4

REPORT INFORMATION
  Report Type: 
  Country: None (occurrence: None)
  Receive Date: 20111110
  Receipt Date: 20110714
  Transmission Date: 20120403
  Serious: No
  Sender: FDA-Public Use
  Company Number: US-ASTRAZENECA-2011SE42310

PATIENT
  Age: 63 Year
  Sex: Female

DRUGS (2)
  1. DIOVAN [Concomitant]
  2. LISINOPRIL [Suspect]
     Route: 048

REACTIONS (3)
  - COUGH [None]
  - RETCHING [None]
  - UPPER-AIRWAY COUGH SYNDROME [None]
